FAERS Safety Report 8025891-7 (Version None)
Quarter: 2012Q1

REPORT INFORMATION
  Report Type: 
  Country: None (occurrence: None)
  Receive Date: 20120105
  Receipt Date: 20111228
  Transmission Date: 20120608
  Serious: Yes (Death)
  Sender: FDA-Public Use
  Company Number: FR-ROCHE-1026109

PATIENT
  Sex: Male
  Weight: 43 kg

DRUGS (8)
  1. INTERFERON ALFA [Suspect]
     Indication: MYCOSIS FUNGOIDES
  2. EMEND [Suspect]
     Indication: VOMITING
  3. LEXOMIL [Concomitant]
  4. DEXERYL (FRANCE) [Concomitant]
  5. LEVOTHYROXINE SODIUM [Concomitant]
  6. AMITRIPTYLINE HCL [Concomitant]
  7. XERIAL (FRANCE) [Concomitant]
  8. TARGRETIN [Suspect]
     Indication: MYCOSIS FUNGOIDES
     Dates: end: 20111205

REACTIONS (1)
  - DEHYDRATION [None]
